FAERS Safety Report 8792777 (Version 3)
Quarter: 2013Q1

REPORT INFORMATION
  Report Type: Report from Study
  Country: JP (occurrence: JP)
  Receive Date: 20120918
  Receipt Date: 20130117
  Transmission Date: 20140127
  Serious: Yes (Other)
  Sender: FDA-Public Use
  Company Number: JP-VERTEX PHARMACEUTICAL INC.-AE-2012-006323

PATIENT
  Age: 63 Year
  Sex: Male

DRUGS (10)
  1. VX-950 (TELAPREVIR) [Suspect]
     Indication: CHRONIC HEPATITIS C
     Dosage: 2250 MG, QD
     Route: 048
     Dates: start: 20120305, end: 20120419
  2. RIBAVIRIN [Suspect]
     Indication: CHRONIC HEPATITIS C
     Dosage: 800 MG, QD
     Route: 048
     Dates: start: 20120305
  3. PEGINTERFERON ALFA-2B [Suspect]
     Indication: CHRONIC HEPATITIS C
     Dosage: 1.5 ?G/KG, QW
     Route: 058
     Dates: start: 20120305
  4. AMLODIN [Concomitant]
     Dosage: 5 MG, QD
     Route: 048
  5. RHYTHMY [Concomitant]
     Dosage: 2 MG, QD
     Route: 048
  6. MYSLEE [Concomitant]
     Dosage: 10 MG, QD
     Route: 048
  7. SELBEX [Concomitant]
     Dosage: 150 MG, QD
     Route: 048
  8. GASTER D [Concomitant]
     Dosage: 40 MG, QD
     Route: 048
  9. LIPITOR [Concomitant]
     Dosage: 10 MG, QD
     Route: 048
     Dates: start: 20120423
  10. ZYLORIC [Concomitant]
     Dosage: 100 MG, QD
     Route: 048

REACTIONS (1)
  - Drug eruption [Recovered/Resolved]
